FAERS Safety Report 16188569 (Version 1)
Quarter: 2019Q2

REPORT INFORMATION
  Report Type: Spontaneous
  Country: GB (occurrence: GB)
  Receive Date: 20190412
  Receipt Date: 20190412
  Transmission Date: 20190711
  Serious: Yes (Other)
  Sender: FDA-Public Use
  Company Number: GB-SA-2018SA308601

PATIENT
  Sex: Female

DRUGS (1)
  1. DUPIXENT [Suspect]
     Active Substance: DUPILUMAB
     Route: 058

REACTIONS (6)
  - Eye pruritus [Unknown]
  - Arthralgia [Unknown]
  - Syncope [Unknown]
  - Hypersensitivity [Unknown]
  - Influenza like illness [Unknown]
  - Ocular hyperaemia [Unknown]
